FAERS Safety Report 15657353 (Version 1)
Quarter: 2018Q4

REPORT INFORMATION
  Report Type: Spontaneous
  Country: US (occurrence: US)
  Receive Date: 20181126
  Receipt Date: 20181126
  Transmission Date: 20190205
  Serious: Yes (Other)
  Sender: FDA-Public Use
  Company Number: None

PATIENT
  Age: 57 Year
  Sex: Female
  Weight: 103.5 kg

DRUGS (3)
  1. AMLODIPINE [Concomitant]
     Active Substance: AMLODIPINE BESYLATE
  2. WARFARIN [Concomitant]
     Active Substance: WARFARIN
  3. LISINOPRIL 10 MG TABLETS [Suspect]
     Active Substance: LISINOPRIL
     Indication: HYPERTENSION
     Dosage: ?          QUANTITY:1 TABLET(S);?
     Route: 048
     Dates: start: 20170414, end: 20181016

REACTIONS (7)
  - Glossodynia [None]
  - Oropharyngeal pain [None]
  - Deep vein thrombosis [None]
  - Cough [None]
  - Feeling of despair [None]
  - Pain [None]
  - Insomnia [None]
